FAERS Safety Report 11347512 (Version 1)
Quarter: 2015Q3

REPORT INFORMATION
  Report Type: Spontaneous
  Country: US (occurrence: US)
  Receive Date: 20150803
  Receipt Date: 20150803
  Transmission Date: 20151125
  Serious: No
  Sender: FDA-Public Use
  Company Number: US-ELI_LILLY_AND_COMPANY-US201106003323

PATIENT
  Age: 35 Year
  Sex: Male

DRUGS (3)
  1. ZYPREXA [Suspect]
     Active Substance: OLANZAPINE
     Dosage: 10 MG, UNK
  2. ZYPREXA ZYDIS [Suspect]
     Active Substance: OLANZAPINE
     Dosage: 10 MG, UNK
  3. ZYPREXA [Suspect]
     Active Substance: OLANZAPINE
     Dosage: 5 MG, UNK

REACTIONS (6)
  - Skin discolouration [Recovering/Resolving]
  - Illusion [Not Recovered/Not Resolved]
  - Weight increased [Not Recovered/Not Resolved]
  - Fear of falling [Not Recovered/Not Resolved]
  - Tardive dyskinesia [Recovered/Resolved]
  - Feeling abnormal [Recovering/Resolving]
